FAERS Safety Report 18286461 (Version 1)
Quarter: 2020Q3

REPORT INFORMATION
  Report Type: Spontaneous
  Country: US (occurrence: US)
  Receive Date: 20200920
  Receipt Date: 20200920
  Transmission Date: 20201103
  Serious: No
  Sender: FDA-Public Use
  Company Number: US-AMGEN INC.-USASP2020151365

PATIENT
  Age: 45 Year
  Sex: Male

DRUGS (1)
  1. AIMOVIG [Suspect]
     Active Substance: ERENUMAB-AOOE
     Indication: MIGRAINE PROPHYLAXIS
     Dosage: 140 MILLIGRAM (EVERY TWO WEEKS)
     Route: 065
     Dates: start: 2018

REACTIONS (2)
  - Accidental exposure to product [Unknown]
  - Off label use [Unknown]

NARRATIVE: CASE EVENT DATE: 2018
